FAERS Safety Report 4534102-6 (Version None)
Quarter: 2004Q4

REPORT INFORMATION
  Report Type: 
  Country: None (occurrence: None)
  Receive Date: 20041221
  Receipt Date: 20041221
  Transmission Date: 20050328
  Serious: Yes (Other)
  Sender: FDA-Public Use
  Company Number: None

PATIENT
  Age: 64 Year
  Sex: Male
  Weight: 63.5 kg

DRUGS (9)
  1. FOSINOPRIL [Suspect]
  2. ASPIRIN [Concomitant]
  3. CILOSTAZOL [Concomitant]
  4. SIMVASTATIN [Concomitant]
  5. VITAMIN E [Concomitant]
  6. DILTIAZEM (INWOOD) [Concomitant]
  7. FOSINOPRIL NA [Concomitant]
  8. IBUPROFEN [Concomitant]
  9. NITROGLYCERIN [Concomitant]

REACTIONS (1)
  - COUGH [None]
